FAERS Safety Report 6163736-0 (Version None)
Quarter: 2009Q2

REPORT INFORMATION
  Report Type: 
  Country: None (occurrence: None)
  Receive Date: 20090420
  Receipt Date: 20090420
  Transmission Date: 20091009
  Serious: Yes (Life-Threatening, Hospitalization)
  Sender: FDA-Public Use
  Company Number: None

PATIENT
  Age: 25 Year
  Sex: Female

DRUGS (9)
  1. HUMALOG [Suspect]
     Indication: TYPE 1 DIABETES MELLITUS
     Dosage: 0.9 UNIT/HR BASAL RATE PUMP
  2. LEVAQUIN [Concomitant]
  3. DULOXETINE HYDROCHLORIDE [Concomitant]
  4. PHENERGAN [Concomitant]
  5. REGLAN [Concomitant]
  6. POTASSIUM CHLORIDE [Concomitant]
  7. PROTONIX [Concomitant]
  8. MORPHINE [Concomitant]
  9. ATIVAN [Concomitant]

REACTIONS (1)
  - BLOOD GLUCOSE DECREASED [None]
